FAERS Safety Report 18843190 (Version 1)
Quarter: 2021Q1

REPORT INFORMATION
  Report Type: Spontaneous
  Country: US (occurrence: US)
  Receive Date: 20210203
  Receipt Date: 20210203
  Transmission Date: 20210419
  Serious: No
  Sender: FDA-Public Use
  Company Number: None

PATIENT
  Age: 22 Year
  Sex: Male
  Weight: 90 kg

DRUGS (1)
  1. KIRKLAND SIGNATURE MINOXIDIL [Suspect]
     Active Substance: MINOXIDIL
     Indication: HAIR GROWTH ABNORMAL
     Dosage: ?          QUANTITY:2 OUNCE(S);?
     Route: 061
     Dates: start: 20201027, end: 20210127

REACTIONS (7)
  - Erectile dysfunction [None]
  - Testicular pain [None]
  - Sexual dysfunction [None]
  - Loss of libido [None]
  - Depression [None]
  - Testicular atrophy [None]
  - Heart rate abnormal [None]

NARRATIVE: CASE EVENT DATE: 20210202
